FAERS Safety Report 9324485 (Version 1)
Quarter: 2013Q2

REPORT INFORMATION
  Report Type: Spontaneous
  Country: US (occurrence: None)
  Receive Date: 20130529
  Receipt Date: 20130529
  Transmission Date: 20140414
  Serious: Yes (Hospitalization, Other)
  Sender: FDA-Public Use
  Company Number: 2013AP005485

PATIENT
  Age: 90 Year
  Sex: Male

DRUGS (1)
  1. SILDENAFIL [Suspect]
     Indication: PULMONARY HYPERTENSION

REACTIONS (5)
  - Respiratory failure [None]
  - Epistaxis [None]
  - Haemoptysis [None]
  - Haemoptysis [None]
  - Pneumonia [None]
